FAERS Safety Report 8928045 (Version 2)
Quarter: 2013Q1

REPORT INFORMATION
  Report Type: Spontaneous
  Country: US (occurrence: None)
  Receive Date: 20121120
  Receipt Date: 20130225
  Transmission Date: 20140127
  Serious: Yes (Hospitalization)
  Sender: FDA-Public Use
  Company Number: ACO_32970_2012

PATIENT
  Age: 55 Year
  Sex: Male

DRUGS (2)
  1. AMPYRA [Suspect]
     Indication: PRODUCT USED FOR UNKNOWN INDICATION
     Dates: start: 201101
  2. TYSABRI (NATALIZUMAB) [Concomitant]

REACTIONS (5)
  - Cystitis [None]
  - Urinary tract infection [None]
  - Depression [None]
  - Multiple sclerosis relapse [None]
  - Constipation [None]
